FAERS Safety Report 20986125 (Version 1)
Quarter: 2022Q2

REPORT INFORMATION
  Report Type: Spontaneous
  Country: US (occurrence: None)
  Receive Date: 20220617
  Receipt Date: 20220617
  Transmission Date: 20220720
  Serious: Yes (Death, Hospitalization, Other)
  Sender: FDA-Public Use
  Company Number: None

PATIENT
  Age: 5 Year
  Sex: Male
  Weight: 21 kg

DRUGS (11)
  1. SODIUM IODIDE I 131 [Suspect]
     Active Substance: SODIUM IODIDE I-131
     Indication: Neuroblastoma
     Dosage: FREQUENCY : ONCE;?
     Route: 042
     Dates: start: 20220309, end: 20220309
  2. FENTANYL [Concomitant]
     Active Substance: FENTANYL
  3. HYDROCORTISONE [Concomitant]
     Active Substance: HYDROCORTISONE
  4. VANCOMYCIN [Concomitant]
     Active Substance: VANCOMYCIN
  5. Cepfepime [Concomitant]
  6. METRONIDAZOLE [Concomitant]
     Active Substance: METRONIDAZOLE
  7. ACETAMINOPHEN [Concomitant]
     Active Substance: ACETAMINOPHEN
  8. LIDOCAINE\PRILOCAINE [Concomitant]
     Active Substance: LIDOCAINE\PRILOCAINE
  9. Pediatric multi vitamins [Concomitant]
  10. ALBUTEROL SULFATE [Concomitant]
     Active Substance: ALBUTEROL SULFATE
  11. ONDANSETRON [Concomitant]
     Active Substance: ONDANSETRON

REACTIONS (20)
  - Respiratory disorder [None]
  - Hypotension [None]
  - Cardio-respiratory distress [None]
  - Right ventricular systolic pressure increased [None]
  - Lung consolidation [None]
  - Acute respiratory distress syndrome [None]
  - Pulmonary hypertension [None]
  - Lung disorder [None]
  - Pneumocystis jirovecii infection [None]
  - Hypoxia [None]
  - Pulmonary function test decreased [None]
  - Tachypnoea [None]
  - Dyspnoea [None]
  - Lung opacity [None]
  - Haemoptysis [None]
  - Heart rate decreased [None]
  - Mental impairment [None]
  - Hypoperfusion [None]
  - Pulmonary haemorrhage [None]
  - Haemorrhage [None]

NARRATIVE: CASE EVENT DATE: 20220312
